FAERS Safety Report 9332870 (Version 1)
Quarter: 2013Q2

REPORT INFORMATION
  Report Type: Spontaneous
  Country: CN (occurrence: CN)
  Receive Date: 20130606
  Receipt Date: 20130606
  Transmission Date: 20140414
  Serious: Yes (Hospitalization)
  Sender: FDA-Public Use
  Company Number: CN-BRISTOL-MYERS SQUIBB COMPANY-18966309

PATIENT
  Age: 84 Year
  Sex: Male

DRUGS (8)
  1. ONGLYZA TABS [Suspect]
     Indication: DIABETES MELLITUS
     Route: 048
     Dates: start: 20120504, end: 20120604
  2. ISOSORBIDE MONONITRATE [Suspect]
     Dosage: ISOSORBIDE MONONITRATE SUSTAINED RELEASE TABS. 1DF: 1 TAB
     Route: 048
     Dates: start: 20120604, end: 20120604
  3. CLOPIDOGREL BISULFATE [Suspect]
     Dosage: 1DF: 1CAPS
     Route: 048
     Dates: start: 20120604, end: 20120604
  4. NIFEDIPINE [Suspect]
     Indication: HYPERTENSION
     Dosage: NIFEDIPINE CONTROLLED RELEASE TABS
     Route: 048
     Dates: start: 20120604, end: 20120604
  5. INSULIN BIOSYNTHETIC HUMAN [Suspect]
     Indication: DIABETES MELLITUS
     Dosage: 1DF: 54UNIT
     Dates: start: 20120604, end: 20120604
  6. ACARBOSE [Suspect]
     Indication: TYPE 2 DIABETES MELLITUS
     Dosage: TABS
     Route: 048
     Dates: start: 20120604, end: 20120604
  7. INSULIN [Concomitant]
     Indication: TYPE 2 DIABETES MELLITUS
  8. NOVOLIN 30R [Concomitant]
     Dosage: 1DF-28U,26U

REACTIONS (2)
  - Diarrhoea [Recovered/Resolved]
  - Dehydration [Recovered/Resolved]
